FAERS Safety Report 14434555 (Version 2)
Quarter: 2018Q1

REPORT INFORMATION
  Report Type: Report from Study
  Country: AU (occurrence: AU)
  Receive Date: 20180124
  Receipt Date: 20180223
  Transmission Date: 20180509
  Serious: Yes (Other)
  Sender: FDA-Public Use
  Company Number: AU-ASTRAZENECA-2018SE07259

PATIENT
  Sex: Female

DRUGS (2)
  1. OSIMERTINIB. [Suspect]
     Active Substance: OSIMERTINIB
     Dosage: 80
     Route: 048
  2. DURVALUMAB. [Suspect]
     Active Substance: DURVALUMAB
     Route: 042

REACTIONS (3)
  - Off label use [Unknown]
  - Disease progression [Unknown]
  - Liver function test increased [Unknown]
